FAERS Safety Report 4469402-1 (Version None)
Quarter: 2004Q4

REPORT INFORMATION
  Report Type: 
  Country: None (occurrence: None)
  Receive Date: 20041005
  Receipt Date: 20040923
  Transmission Date: 20050328
  Serious: Yes (Death, Hospitalization)
  Sender: FDA-Public Use
  Company Number: 430012M04FRA

PATIENT
  Age: 50 Year
  Sex: Male

DRUGS (1)
  1. NOVANTRONE [Suspect]
     Indication: MULTIPLE SCLEROSIS
     Dosage: 20 MG, 1 IN 1 CYCLE, INTRAVENOUS
     Route: 042
     Dates: start: 20020601, end: 20021201

REACTIONS (2)
  - ACUTE PROMYELOCYTIC LEUKAEMIA [None]
  - RESPIRATORY FAILURE [None]
